FAERS Safety Report 4506268-5 (Version None)
Quarter: 2004Q4

REPORT INFORMATION
  Report Type: 
  Country: None (occurrence: None)
  Receive Date: 20041119
  Receipt Date: 20041115
  Transmission Date: 20050328
  Serious: Yes (Death, Life-Threatening, Hospitalization, Disabling)
  Sender: FDA-Public Use
  Company Number: US-MERCK-0411USA02617

PATIENT
  Age: 52 Year
  Sex: Female

DRUGS (2)
  1. VIOXX [Suspect]
     Indication: PAIN
     Route: 048
     Dates: end: 20031102
  2. VIOXX [Suspect]
     Indication: INFLAMMATION
     Route: 048
     Dates: end: 20031102

REACTIONS (2)
  - PULMONARY EMBOLISM [None]
  - THROMBOSIS [None]
